FAERS Safety Report 24897094 (Version 1)
Quarter: 2025Q1

REPORT INFORMATION
  Report Type: Spontaneous
  Country: GB (occurrence: GB)
  Receive Date: 20250128
  Receipt Date: 20250128
  Transmission Date: 20250409
  Serious: Yes (Life-Threatening, Other)
  Sender: ALKEM
  Company Number: None

PATIENT
  Age: 41 Year
  Sex: Female
  Weight: 68 kg

DRUGS (9)
  1. CEPHALEXIN [Suspect]
     Active Substance: CEPHALEXIN
     Indication: Urinary tract infection
     Dosage: 500 MILLIGRAM, BID (CAPSULE)
     Route: 065
     Dates: start: 20230922, end: 20230922
  2. CETIRIZINE [Concomitant]
     Active Substance: CETIRIZINE HYDROCHLORIDE
     Indication: Urticaria chronic
     Route: 065
     Dates: start: 20180101
  3. BECLOMETHASONE DIPROPIONATE [Concomitant]
     Active Substance: BECLOMETHASONE DIPROPIONATE
     Indication: Asthma
     Route: 065
     Dates: start: 20150101
  4. GABAPENTIN [Concomitant]
     Active Substance: GABAPENTIN
     Indication: Spinal osteoarthritis
     Route: 065
     Dates: start: 20230501
  5. GABAPENTIN [Concomitant]
     Active Substance: GABAPENTIN
     Indication: Kyphosis
  6. GABAPENTIN [Concomitant]
     Active Substance: GABAPENTIN
     Indication: Scoliosis
  7. VITAMINS [Concomitant]
     Active Substance: VITAMINS
     Indication: Malnutrition
     Route: 065
     Dates: start: 20170101
  8. PROPRANOLOL [Concomitant]
     Active Substance: PROPRANOLOL HYDROCHLORIDE
     Indication: Anxiety
     Route: 065
     Dates: start: 20210101
  9. VENLAFAXINE HYDROCHLORIDE [Concomitant]
     Active Substance: VENLAFAXINE HYDROCHLORIDE
     Indication: Anxiety
     Route: 065
     Dates: start: 20170801

REACTIONS (1)
  - Anaphylactic shock [Recovered/Resolved]

NARRATIVE: CASE EVENT DATE: 20230922
